FAERS Safety Report 8532013-2 (Version None)
Quarter: 2012Q3

REPORT INFORMATION
  Report Type: 
  Country: None (occurrence: None)
  Receive Date: 20120723
  Receipt Date: 20120717
  Transmission Date: 20120928
  Serious: Yes (Hospitalization)
  Sender: FDA-Public Use
  Company Number: PHHY2012JP062167

PATIENT
  Age: 75 Year
  Sex: Male

DRUGS (6)
  1. PIPERACILLIN SODIUM [Suspect]
  2. VANCOMYCIN HYCHLORIDE [Suspect]
     Route: 042
  3. ARBEKACIN SULFATE [Suspect]
  4. CLINDAMYCIN HCL [Suspect]
  5. CEFTRIAXONE SODIUM [Suspect]
  6. SULFASALAZINE [Concomitant]
     Dosage: 3 G, UNK

REACTIONS (8)
  - RECTAL STENOSIS [None]
  - PYREXIA [None]
  - OCCULT BLOOD [None]
  - INTESTINAL OBSTRUCTION [None]
  - RECTAL ULCER [None]
  - CLOSTRIDIUM COLITIS [None]
  - DIARRHOEA [None]
  - FREQUENT BOWEL MOVEMENTS [None]
